FAERS Safety Report 4908642-1 (Version None)
Quarter: 2006Q1

REPORT INFORMATION
  Report Type: 
  Country: None (occurrence: None)
  Receive Date: 20060210
  Receipt Date: 20041103
  Transmission Date: 20060701
  Serious: No
  Sender: FDA-Public Use
  Company Number: US-GLAXOSMITHKLINE-A0575905A

PATIENT
  Sex: Female

DRUGS (5)
  1. PAXIL CR [Suspect]
     Indication: DEPRESSION
     Dosage: 25MG PER DAY
     Route: 048
     Dates: start: 20040501
  2. PAXIL [Suspect]
     Indication: DRUG USE FOR UNKNOWN INDICATION
     Route: 048
  3. XANAX [Concomitant]
  4. TOPROL-XL [Concomitant]
  5. LISINOPRIL [Concomitant]

REACTIONS (4)
  - DRUG INTOLERANCE [None]
  - FEELING ABNORMAL [None]
  - SENSORY DISTURBANCE [None]
  - SEXUAL DYSFUNCTION [None]
